FAERS Safety Report 14767102 (Version 2)
Quarter: 2018Q2

REPORT INFORMATION
  Report Type: Spontaneous
  Country: GB (occurrence: GB)
  Receive Date: 20180417
  Receipt Date: 20180618
  Transmission Date: 20180711
  Serious: Yes (Other)
  Sender: FDA-Public Use
  Company Number: GB-BIOGEN-2018BI00553424

PATIENT
  Age: 44 Year
  Sex: Female

DRUGS (1)
  1. TECFIDERA [Suspect]
     Active Substance: DIMETHYL FUMARATE
     Indication: PRODUCT USED FOR UNKNOWN INDICATION
     Route: 065
     Dates: start: 201508, end: 20170309

REACTIONS (16)
  - Contusion [Unknown]
  - Hot flush [Unknown]
  - Panic attack [Recovered/Resolved]
  - Sensory disturbance [Unknown]
  - Memory impairment [Unknown]
  - Back pain [Unknown]
  - White blood cell count decreased [Recovered/Resolved]
  - Urinary retention [Unknown]
  - Facial pain [Unknown]
  - Sensory loss [Unknown]
  - Pruritus [Unknown]
  - Paraesthesia [Unknown]
  - Feeling abnormal [Unknown]
  - Eczema [Unknown]
  - Urinary incontinence [Unknown]
  - Multiple sclerosis relapse [Unknown]

NARRATIVE: CASE EVENT DATE: 201611
